FAERS Safety Report 4936933-7 (Version None)
Quarter: 2006Q1

REPORT INFORMATION
  Report Type: 
  Country: None (occurrence: None)
  Receive Date: 20060307
  Receipt Date: 20050406
  Transmission Date: 20060701
  Serious: Yes (Death, Hospitalization)
  Sender: FDA-Public Use
  Company Number: US-MERCK-0504USA01041

PATIENT
  Age: 41 Year
  Sex: Female

DRUGS (1)
  1. VIOXX [Suspect]
     Route: 048

REACTIONS (21)
  - ANAEMIA [None]
  - BRONCHITIS [None]
  - CHEST PAIN [None]
  - CHOLELITHIASIS [None]
  - DEHYDRATION [None]
  - DIZZINESS [None]
  - DYSPNOEA EXERTIONAL [None]
  - GASTROOESOPHAGEAL REFLUX DISEASE [None]
  - HEADACHE [None]
  - HYPOXIA [None]
  - IMMUNODEFICIENCY [None]
  - MUSCULOSKELETAL PAIN [None]
  - OESOPHAGITIS [None]
  - PLEURITIC PAIN [None]
  - PNEUMONIA [None]
  - PULMONARY HYPERTENSION [None]
  - RAYNAUD'S PHENOMENON [None]
  - SYNCOPE [None]
  - SYSTEMIC LUPUS ERYTHEMATOSUS [None]
  - URTICARIA GENERALISED [None]
  - VIRAL INFECTION [None]
